FAERS Safety Report 14318480 (Version 1)
Quarter: 2017Q4

REPORT INFORMATION
  Report Type: Spontaneous
  Country: US (occurrence: US)
  Receive Date: 20171222
  Receipt Date: 20171222
  Transmission Date: 20180321
  Serious: No
  Sender: FDA-Public Use
  Company Number: US-009507513-1711USA011949

PATIENT
  Age: 63 Year
  Sex: Female

DRUGS (2)
  1. STROMECTOL [Suspect]
     Active Substance: IVERMECTIN
     Indication: ACARODERMATITIS
     Dosage: 18 MG, QW
     Route: 048
     Dates: start: 201710
  2. PERMETHRIN. [Concomitant]
     Active Substance: PERMETHRIN

REACTIONS (5)
  - Adverse event [Unknown]
  - Bite [Not Recovered/Not Resolved]
  - Drug dose omission [Unknown]
  - Mass [Unknown]
  - Pruritus [Not Recovered/Not Resolved]

NARRATIVE: CASE EVENT DATE: 2017
